FAERS Safety Report 7201864-9 (Version None)
Quarter: 2010Q4

REPORT INFORMATION
  Report Type: 
  Country: None (occurrence: None)
  Receive Date: 20101229
  Receipt Date: 20101112
  Transmission Date: 20110411
  Serious: No
  Sender: FDA-Public Use
  Company Number: US-BAYER-2010-005000

PATIENT
  Sex: Male
  Weight: 77 kg

DRUGS (7)
  1. ALEVE [Suspect]
  2. PLAVIX [Concomitant]
  3. OMEPRAZOLE [Concomitant]
  4. DIOVAN [Concomitant]
  5. AMLODIPINE BESYLATE [Concomitant]
  6. ATENOLOL [Concomitant]
  7. NIACIN [Concomitant]

REACTIONS (1)
  - ABDOMINAL DISCOMFORT [None]
